FAERS Safety Report 7334595-5 (Version None)
Quarter: 2011Q1

REPORT INFORMATION
  Report Type: 
  Country: None (occurrence: None)
  Receive Date: 20110307
  Receipt Date: 20101209
  Transmission Date: 20110831
  Serious: No
  Sender: FDA-Public Use
  Company Number: A0899730A

PATIENT
  Age: 61 Year
  Sex: Female

DRUGS (2)
  1. REQUIP [Suspect]
     Dosage: .5MG UNKNOWN
     Route: 048
     Dates: start: 20101105
  2. SLEEPING PILLS [Concomitant]

REACTIONS (1)
  - DRUG INEFFECTIVE [None]
